FAERS Safety Report 21652378 (Version 2)
Quarter: 2022Q4

REPORT INFORMATION
  Report Type: Spontaneous
  Country: US (occurrence: US)
  Receive Date: 20221128
  Receipt Date: 20221201
  Transmission Date: 20230113
  Serious: No
  Sender: FDA-Public Use
  Company Number: US-GLAXOSMITHKLINE-USCH2022046056

PATIENT

DRUGS (5)
  1. ADVIL PM [Suspect]
     Active Substance: DIPHENHYDRAMINE CITRATE\IBUPROFEN
     Indication: Headache
     Dosage: UNK
  2. ADVIL PM [Suspect]
     Active Substance: DIPHENHYDRAMINE CITRATE\IBUPROFEN
     Indication: Rhinorrhoea
  3. BIOTENE GENTLE MINT (SODIUM MONOFLUOROPHOSPHATE) [Suspect]
     Active Substance: SODIUM MONOFLUOROPHOSPHATE
     Indication: Stomatitis
     Dosage: UNK
  4. BIOTENE GENTLE MINT (SODIUM MONOFLUOROPHOSPHATE) [Suspect]
     Active Substance: SODIUM MONOFLUOROPHOSPHATE
     Indication: Oral pain
  5. BIOTENE GENTLE MINT (SODIUM MONOFLUOROPHOSPHATE) [Suspect]
     Active Substance: SODIUM MONOFLUOROPHOSPHATE
     Indication: Dental caries

REACTIONS (3)
  - Product use in unapproved indication [Unknown]
  - Drug effective for unapproved indication [Unknown]
  - Stomatitis [Unknown]
